FAERS Safety Report 8858825 (Version 3)
Quarter: 2012Q4

REPORT INFORMATION
  Report Type: 
  Country: KR (occurrence: KR)
  Receive Date: 20121024
  Receipt Date: 20121226
  Transmission Date: 20130627
  Serious: Yes (Other)
  Sender: FDA-Public Use
  Company Number: KR-JNJFOC-20121008206

PATIENT

DRUGS (1)
  1. STELARA [Suspect]
     Indication: PUSTULAR PSORIASIS
     Route: 058

REACTIONS (2)
  - Lung neoplasm malignant [Unknown]
  - Off label use [Unknown]
